FAERS Safety Report 7390300-8 (Version None)
Quarter: 2011Q2

REPORT INFORMATION
  Report Type: 
  Country: None (occurrence: None)
  Receive Date: 20110401
  Receipt Date: 20110329
  Transmission Date: 20111010
  Serious: No
  Sender: FDA-Public Use
  Company Number: US-TEVA-273905USA

PATIENT
  Sex: Female

DRUGS (3)
  1. ALBUTEROL SULFATE AUTOHALER [Suspect]
     Route: 055
  2. BUDESONIDE W/FORMOTEROL FUMARATE [Concomitant]
  3. MONTELUKAST SODIUM [Concomitant]

REACTIONS (1)
  - THROAT IRRITATION [None]
